FAERS Safety Report 10414829 (Version 2)
Quarter: 2014Q4

REPORT INFORMATION
  Report Type: Spontaneous
  Country: US (occurrence: US)
  Receive Date: 20140828
  Receipt Date: 20141002
  Transmission Date: 20150528
  Serious: No
  Sender: FDA-Public Use
  Company Number: US-009507513-1408USA013510

PATIENT
  Age: 15 Year
  Sex: Female
  Weight: 74.83 kg

DRUGS (1)
  1. NEXPLANON [Suspect]
     Active Substance: ETONOGESTREL
     Indication: CONTRACEPTION
     Dosage: UNK
     Route: 059
     Dates: start: 201406

REACTIONS (2)
  - Device kink [Unknown]
  - No adverse event [Unknown]

NARRATIVE: CASE EVENT DATE: 2014
